FAERS Safety Report 7755562-3 (Version None)
Quarter: 2011Q3

REPORT INFORMATION
  Report Type: 
  Country: None (occurrence: None)
  Receive Date: 20110915
  Receipt Date: 20110915
  Transmission Date: 20111222
  Serious: Yes (Other)
  Sender: FDA-Public Use
  Company Number: None

PATIENT
  Sex: Female

DRUGS (1)
  1. XELODA [Suspect]
     Indication: BREAST CANCER
     Dosage: 1500MG BID PO
     Route: 048
     Dates: start: 20100409, end: 20110808

REACTIONS (2)
  - ERYTHEMA [None]
  - SKIN EXFOLIATION [None]
